FAERS Safety Report 5225654-1 (Version None)
Quarter: 2007Q1

REPORT INFORMATION
  Report Type: 
  Country: None (occurrence: None)
  Receive Date: 20061201
  Receipt Date: 20061027
  Transmission Date: 20070707
  Serious: No
  Sender: FDA-Public Use
  Company Number: USA0508106818

PATIENT
  Age: 32 Year
  Sex: Female

DRUGS (5)
  1. CYMBALTA [Suspect]
     Indication: PANIC DISORDER
     Dosage: SEE IMAGE
     Dates: end: 20060301
  2. CYMBALTA [Suspect]
     Indication: PANIC DISORDER
     Dosage: SEE IMAGE
     Dates: start: 20050701
  3. PROZAC [Suspect]
     Indication: PANIC DISORDER
  4. TRAZODONE HCL [Concomitant]
  5. CLONAZEPAM [Concomitant]

REACTIONS (5)
  - AMNIOTIC FLUID VOLUME DECREASED [None]
  - DRUG EXPOSURE DURING PREGNANCY [None]
  - GESTATIONAL DIABETES [None]
  - INFECTION [None]
  - NAUSEA [None]
